FAERS Safety Report 22256238 (Version 1)
Quarter: 2023Q2

REPORT INFORMATION
  Report Type: Spontaneous
  Country: GB (occurrence: GB)
  Receive Date: 20230426
  Receipt Date: 20230426
  Transmission Date: 20230722
  Serious: Yes (Other)
  Sender: FDA-Public Use
  Company Number: GB-MHRA-MED-202304151939481980-KHNZM

PATIENT
  Age: 40 Year
  Sex: Female

DRUGS (4)
  1. DOXYCYCLINE [Suspect]
     Active Substance: DOXYCYCLINE
     Indication: Lower respiratory tract infection
     Dosage: 100 MG, 2X/DAY
     Dates: start: 20230412, end: 20230412
  2. HYDROCORTISONE [Concomitant]
     Active Substance: HYDROCORTISONE
     Indication: Dermatitis contact
     Dates: start: 20230120
  3. HYDROCORTISONE [Concomitant]
     Active Substance: HYDROCORTISONE
     Indication: Carpus curvus
     Dates: start: 20220907
  4. PROTOPIC [Concomitant]
     Active Substance: TACROLIMUS
     Indication: Dermatitis contact
     Dates: start: 20230120

REACTIONS (8)
  - Eye swelling [Not Recovered/Not Resolved]
  - Mouth ulceration [Not Recovered/Not Resolved]
  - Eye irritation [Recovered/Resolved]
  - Dermatitis contact [Not Recovered/Not Resolved]
  - Skin burning sensation [Unknown]
  - Paraesthesia [Unknown]
  - Periorbital swelling [Unknown]
  - Ocular hyperaemia [Unknown]

NARRATIVE: CASE EVENT DATE: 20230412
